FAERS Safety Report 14689674 (Version 1)
Quarter: 2018Q1

REPORT INFORMATION
  Report Type: Spontaneous
  Country: US (occurrence: US)
  Receive Date: 20180327
  Receipt Date: 20180327
  Transmission Date: 20180509
  Serious: Yes (Hospitalization)
  Sender: FDA-Public Use
  Company Number: None

PATIENT
  Sex: Female

DRUGS (8)
  1. VERAPAMIL 120MG ER [Concomitant]
  2. ONDANSETRON 8MG [Concomitant]
     Active Substance: ONDANSETRON
  3. IBRANCE [Suspect]
     Active Substance: PALBOCICLIB
     Indication: BREAST CANCER
     Route: 048
     Dates: start: 20171212
  4. ELIQUIS [Concomitant]
     Active Substance: APIXABAN
  5. PROCHLORPERAZINE 10MG [Concomitant]
  6. CALCIUM 600MG [Concomitant]
  7. ANASTROZOLE 1MG [Concomitant]
     Active Substance: ANASTROZOLE
  8. METOPROLOL TARTRATE 100MG [Concomitant]
     Active Substance: METOPROLOL TARTRATE

REACTIONS (1)
  - Pneumonia [None]
